FAERS Safety Report 4555118-X (Version None)
Quarter: 2004Q4

REPORT INFORMATION
  Report Type: 
  Country: None (occurrence: None)
  Receive Date: 20041217
  Receipt Date: 20040805
  Transmission Date: 20050328
  Serious: No
  Sender: FDA-Public Use
  Company Number: 2004-BP-05572BP

PATIENT
  Age: 75 Year
  Sex: Male
  Weight: 89.8 kg

DRUGS (7)
  1. SPIRIVA [Suspect]
     Indication: CHRONIC OBSTRUCTIVE AIRWAYS DISEASE
     Dosage: 18 MCG (18 MCG, 1 IN 1 D), IH
     Route: 055
     Dates: start: 20040630, end: 20040712
  2. ACETYLSALICYLIC ACID SRT [Concomitant]
  3. FOSINOPRIL [Concomitant]
  4. ALLOPURINOL [Concomitant]
  5. ZOCOR [Concomitant]
  6. VERAPAMIL [Concomitant]
  7. ALBUTEROL [Concomitant]

REACTIONS (2)
  - DRY MOUTH [None]
  - WHEEZING [None]
